FAERS Safety Report 10048653 (Version 1)
Quarter: 2014Q1

REPORT INFORMATION
  Report Type: Spontaneous
  Country: US (occurrence: US)
  Receive Date: 20140331
  Receipt Date: 20140331
  Transmission Date: 20141002
  Serious: No
  Sender: FDA-Public Use
  Company Number: US-PFIZER INC-2014090255

PATIENT
  Age: 68 Year
  Sex: Female
  Weight: 76.19 kg

DRUGS (6)
  1. LYRICA [Suspect]
     Indication: CONVULSION
     Dosage: 300 MG, 1X/DAY
  2. LYRICA [Suspect]
     Dosage: 300 MG, 2X/DAY
  3. LYRICA [Suspect]
     Dosage: 300 MG, 1X/DAY
     Dates: start: 20140227
  4. BYETTA [Concomitant]
     Indication: TYPE 2 DIABETES MELLITUS
     Dosage: UNK
  5. METFORMIN [Concomitant]
     Indication: TYPE 2 DIABETES MELLITUS
     Dosage: UNK
  6. LANTUS [Concomitant]
     Indication: TYPE 2 DIABETES MELLITUS
     Dosage: UNK

REACTIONS (3)
  - Nightmare [Unknown]
  - Fall [Unknown]
  - Sleep talking [Unknown]
